FAERS Safety Report 10690014 (Version 1)
Quarter: 2015Q1

REPORT INFORMATION
  Report Type: Spontaneous
  Country: US (occurrence: None)
  Receive Date: 20150102
  Receipt Date: 20150102
  Transmission Date: 20150720
  Serious: Yes (Other)
  Sender: FDA-Public Use
  Company Number: None

PATIENT
  Age: 55 Year
  Sex: Female

DRUGS (2)
  1. DULOXETINE 60MG [Suspect]
     Active Substance: DULOXETINE
     Indication: NEUROPATHY PERIPHERAL
     Dates: start: 20141212
  2. DULOXETINE 60MG [Suspect]
     Active Substance: DULOXETINE
     Indication: MYALGIA
     Dates: start: 20141212

REACTIONS (3)
  - Insomnia [None]
  - Vomiting [None]
  - Faecaloma [None]
